FAERS Safety Report 23922889 (Version 2)
Quarter: 2025Q1

REPORT INFORMATION
  Report Type: Report from Study
  Country: US (occurrence: US)
  Receive Date: 20240531
  Receipt Date: 20250130
  Transmission Date: 20250409
  Serious: Yes (Hospitalization)
  Sender: UCB
  Company Number: US-UCBSA-2024026367

PATIENT
  Sex: Female
  Weight: 38.8 kg

DRUGS (2)
  1. FINTEPLA [Suspect]
     Active Substance: FENFLURAMINE
     Indication: Severe myoclonic epilepsy of infancy
     Dates: start: 20201106
  2. FINTEPLA [Suspect]
     Active Substance: FENFLURAMINE
     Dosage: 5.2 MILLILITER, 2X/DAY (BID)

REACTIONS (1)
  - Illness [Not Recovered/Not Resolved]
